FAERS Safety Report 9735105 (Version 2)
Quarter: 2014Q1

REPORT INFORMATION
  Report Type: Spontaneous
  Country: GB (occurrence: None)
  Receive Date: 20131204
  Receipt Date: 20140113
  Transmission Date: 20141002
  Serious: Yes (Hospitalization)
  Sender: FDA-Public Use
  Company Number: GB-JNJFOC-20131113681

PATIENT
  Age: 83 Year
  Sex: Male
  Weight: 63 kg

DRUGS (8)
  1. DACOGEN [Suspect]
     Indication: MYELODYSPLASTIC SYNDROME
     Dosage: 1 DAY
     Route: 042
     Dates: start: 20130909, end: 20130913
  2. OMEPRAZOLE [Concomitant]
  3. LATANOPROST [Concomitant]
  4. DORZOLAMIDE [Concomitant]
  5. ONDANSETRON [Concomitant]
  6. SENNA (SENNA ALEXANDRINA) [Concomitant]
  7. CYCLIZINE [Concomitant]
  8. AUGMENTIN [Concomitant]

REACTIONS (5)
  - Abdominal pain lower [None]
  - Appendicitis [None]
  - Pyrexia [None]
  - Colitis [None]
  - Appendix disorder [None]
